FAERS Safety Report 25556282 (Version 1)
Quarter: 2025Q3

REPORT INFORMATION
  Report Type: Spontaneous
  Country: US (occurrence: US)
  Receive Date: 20250715
  Receipt Date: 20250715
  Transmission Date: 20251021
  Serious: No
  Sender: NOVO NORDISK
  Company Number: US-NOVOPROD-1347964

PATIENT
  Sex: Female

DRUGS (2)
  1. OZEMPIC [Suspect]
     Active Substance: SEMAGLUTIDE
     Indication: Glucose tolerance impaired
  2. OZEMPIC [Suspect]
     Active Substance: SEMAGLUTIDE
     Indication: Blood glucose increased
     Dosage: 0.25 MG, QW
     Route: 058
     Dates: start: 20240701

REACTIONS (5)
  - Pain [Not Recovered/Not Resolved]
  - Asthenia [Unknown]
  - Nausea [Not Recovered/Not Resolved]
  - Diarrhoea [Not Recovered/Not Resolved]
  - Inappropriate schedule of product administration [Unknown]
